FAERS Safety Report 8797001 (Version 2)
Quarter: 2013Q4

REPORT INFORMATION
  Report Type: Spontaneous
  Country: US (occurrence: US)
  Receive Date: 20120919
  Receipt Date: 20131031
  Transmission Date: 20140711
  Serious: No
  Sender: FDA-Public Use
  Company Number: US-009507513-2011SP051785

PATIENT
  Sex: Male
  Weight: 80.29 kg

DRUGS (5)
  1. PEG-INTRON [Suspect]
     Dosage: 150 MCG/0.5ML
     Route: 058
  2. VICTRELIS [Suspect]
     Dosage: 800 MG, Q8H
     Route: 048
  3. RIBAPAK [Concomitant]
     Dosage: 1200 MG, QD
  4. BENADRYL [Concomitant]
     Dosage: UNK
  5. TYLENOL [Concomitant]
     Dosage: UNK

REACTIONS (12)
  - Drug ineffective [Unknown]
  - Increased upper airway secretion [Unknown]
  - Furuncle [Unknown]
  - Dermatitis allergic [Unknown]
  - Muscle spasms [Unknown]
  - Dental caries [Unknown]
  - Dysgeusia [Unknown]
  - Irritability [Unknown]
  - Platelet count decreased [Unknown]
  - Abdominal pain lower [Unknown]
  - Cough [Unknown]
  - Dehydration [Unknown]
